FAERS Safety Report 21394126 (Version 1)
Quarter: 2022Q3

REPORT INFORMATION
  Report Type: Spontaneous
  Country: JP (occurrence: JP)
  Receive Date: 20220930
  Receipt Date: 20220930
  Transmission Date: 20221027
  Serious: Yes (Hospitalization, Other)
  Sender: FDA-Public Use
  Company Number: JP-CHUGAI-2022034472

PATIENT
  Age: 8 Decade
  Sex: Male

DRUGS (2)
  1. PERJETA [Suspect]
     Active Substance: PERTUZUMAB
     Indication: Rectal cancer
     Route: 041
     Dates: start: 20220622, end: 20220829
  2. HERCEPTIN [Suspect]
     Active Substance: TRASTUZUMAB
     Indication: Rectal cancer
     Route: 041

REACTIONS (2)
  - Ileus [Recovering/Resolving]
  - Metastases to peritoneum [Unknown]

NARRATIVE: CASE EVENT DATE: 20220829
